FAERS Safety Report 8958281 (Version 1)
Quarter: 2012Q4

REPORT INFORMATION
  Report Type: 
  Country: EC (occurrence: EC)
  Receive Date: 20121211
  Receipt Date: 20121211
  Transmission Date: 20130627
  Serious: Yes (Hospitalization, Other)
  Sender: FDA-Public Use
  Company Number: PHHY2012EC113091

PATIENT
  Sex: Male

DRUGS (1)
  1. STALEVO [Suspect]
     Indication: PARKINSON^S DISEASE
     Dosage: 150 mg, UNK (150/37.5 mg)
     Route: 048
     Dates: start: 20120110, end: 201207

REACTIONS (7)
  - Ischaemic stroke [Recovered/Resolved with Sequelae]
  - Hemiplegia [Unknown]
  - Balance disorder [Unknown]
  - Disorientation [Unknown]
  - Gait disturbance [Unknown]
  - Hypothyroidism [Unknown]
  - Stress [Unknown]
